FAERS Safety Report 17704473 (Version 2)
Quarter: 2020Q2

REPORT INFORMATION
  Report Type: Spontaneous
  Country: AU (occurrence: AU)
  Receive Date: 20200424
  Receipt Date: 20200521
  Transmission Date: 20200714
  Serious: Yes (Hospitalization)
  Sender: FDA-Public Use
  Company Number: AU-VERTEX PHARMACEUTICALS-2020-009397

PATIENT
  Age: 29 Year
  Sex: Female

DRUGS (2)
  1. KALYDECO [Suspect]
     Active Substance: IVACAFTOR
     Indication: CYSTIC FIBROSIS
     Dosage: UNK, QD
     Route: 048
  2. KALYDECO [Suspect]
     Active Substance: IVACAFTOR
     Dosage: UNK, BID
     Route: 048

REACTIONS (3)
  - Exposure during pregnancy [Unknown]
  - Hospitalisation [Not Recovered/Not Resolved]
  - Labour induction [Unknown]

NARRATIVE: CASE EVENT DATE: 2018
